FAERS Safety Report 10238943 (Version 1)
Quarter: 2014Q2

REPORT INFORMATION
  Report Type: Other
  Country: ES (occurrence: ES)
  Receive Date: 20140616
  Receipt Date: 20140616
  Transmission Date: 20141212
  Serious: Yes (Other)
  Sender: FDA-Public Use
  Company Number: ES-ASTELLAS-2014EU007545

PATIENT
  Age: 47 Year
  Sex: Female

DRUGS (1)
  1. BETMIGA [Suspect]
     Indication: POLLAKIURIA
     Dosage: 50 MG, UNK
     Route: 048
     Dates: start: 20140430, end: 20140515

REACTIONS (2)
  - Weight increased [Recovering/Resolving]
  - Generalised oedema [Recovering/Resolving]
